FAERS Safety Report 5266242-0 (Version None)
Quarter: 2007Q1

REPORT INFORMATION
  Report Type: 
  Country: None (occurrence: None)
  Receive Date: 20070315
  Receipt Date: 20070305
  Transmission Date: 20070707
  Serious: Yes (Death, Other)
  Sender: FDA-Public Use
  Company Number: FR-GLAXOSMITHKLINE-B0461718A

PATIENT
  Age: 69 Year
  Sex: Male

DRUGS (1)
  1. ARIXTRA [Suspect]
     Dosage: 7.5MG PER DAY
     Route: 058
     Dates: start: 20070101, end: 20070101

REACTIONS (3)
  - DEATH [None]
  - OFF LABEL USE [None]
  - RECTAL HAEMORRHAGE [None]
